FAERS Safety Report 9242024 (Version 2)
Quarter: 2013Q2

REPORT INFORMATION
  Report Type: Spontaneous
  Country: US (occurrence: US)
  Receive Date: 20130419
  Receipt Date: 20130523
  Transmission Date: 20140414
  Serious: Yes (Other)
  Sender: FDA-Public Use
  Company Number: US-ROCHE-1158867

PATIENT
  Age: 57 Year
  Sex: Female
  Weight: 106.69 kg

DRUGS (6)
  1. XANAX [Concomitant]
  2. ACCUTANE [Suspect]
     Indication: KERATOSIS FOLLICULAR
     Route: 048
     Dates: start: 199808, end: 200306
  3. ACCUTANE [Suspect]
     Route: 065
     Dates: start: 20071107, end: 20080104
  4. ACCUTANE [Suspect]
     Route: 065
     Dates: start: 20090322, end: 20090701
  5. ISOTRETINOIN [Suspect]
     Indication: PRODUCT USED FOR UNKNOWN INDICATION
     Route: 065
     Dates: start: 200405, end: 200712
  6. ISOTRETINOIN [Suspect]
     Route: 065
     Dates: start: 200903, end: 200904

REACTIONS (7)
  - Colitis ulcerative [Unknown]
  - Inflammatory bowel disease [Unknown]
  - Depression [Unknown]
  - Intestinal obstruction [Unknown]
  - Hepatic enzyme increased [Unknown]
  - Blood cholesterol increased [Unknown]
  - Lip dry [Unknown]
